FAERS Safety Report 13953314 (Version 2)
Quarter: 2017Q4

REPORT INFORMATION
  Report Type: Spontaneous
  Country: JP (occurrence: JP)
  Receive Date: 20170911
  Receipt Date: 20171207
  Transmission Date: 20180320
  Serious: Yes (Other)
  Sender: FDA-Public Use
  Company Number: JP-ALEMBIC PHARMACUETICALS LIMITED-2017SCAL000758

PATIENT

DRUGS (4)
  1. METRONIDAZOLE. [Suspect]
     Active Substance: METRONIDAZOLE
     Indication: HELICOBACTER INFECTION
     Dosage: 500 MG FOR 7 DAYS
     Route: 065
  2. AMOXICILLIN. [Suspect]
     Active Substance: AMOXICILLIN
     Indication: HELICOBACTER INFECTION
     Dosage: 1500 MG, QD
     Route: 065
  3. VONOPRAZAN [Concomitant]
     Active Substance: VONOPRAZAN
     Indication: PRODUCT USED FOR UNKNOWN INDICATION
     Dosage: 80 MG, QD
  4. RABEPRAZOLE [Suspect]
     Active Substance: RABEPRAZOLE
     Indication: HELICOBACTER INFECTION
     Dosage: 20 MG, UNK

REACTIONS (3)
  - Diarrhoea haemorrhagic [Unknown]
  - Abdominal pain [Recovered/Resolved]
  - Enterocolitis haemorrhagic [Unknown]

NARRATIVE: CASE EVENT DATE: 2015
